FAERS Safety Report 11476768 (Version 1)
Quarter: 2015Q3

REPORT INFORMATION
  Report Type: Other
  Country: AU (occurrence: AU)
  Receive Date: 20150909
  Receipt Date: 20150909
  Transmission Date: 20151125
  Serious: Yes (Other)
  Sender: FDA-Public Use
  Company Number: AU-LUPIN PHARMACEUTICALS INC.-2015-02698

PATIENT
  Age: 49 Year
  Sex: Female

DRUGS (8)
  1. SODIUM VALPROATE [Concomitant]
     Active Substance: VALPROATE SODIUM
     Indication: MIGRAINE WITHOUT AURA
     Route: 065
  2. ONDANSETRON [Concomitant]
     Active Substance: ONDANSETRON
     Indication: MIGRAINE WITHOUT AURA
     Route: 048
  3. TOPIRAMATE. [Suspect]
     Active Substance: TOPIRAMATE
     Route: 065
  4. TOPIRAMATE. [Suspect]
     Active Substance: TOPIRAMATE
     Route: 065
  5. SUMATRIPTAN. [Concomitant]
     Active Substance: SUMATRIPTAN
     Indication: MIGRAINE WITHOUT AURA
     Route: 058
  6. TOPIRAMATE. [Suspect]
     Active Substance: TOPIRAMATE
     Indication: MIGRAINE WITHOUT AURA
     Route: 065
  7. TOPIRAMATE. [Suspect]
     Active Substance: TOPIRAMATE
     Dosage: 25 MG
     Route: 065
  8. ATENOLOL. [Concomitant]
     Active Substance: ATENOLOL
     Indication: MIGRAINE WITHOUT AURA
     Dosage: 50 MG
     Route: 065

REACTIONS (3)
  - Thinking abnormal [Recovered/Resolved]
  - Weight increased [Recovering/Resolving]
  - Hyperphagia [Recovered/Resolved]
